FAERS Safety Report 16710030 (Version 2)
Quarter: 2019Q3

REPORT INFORMATION
  Report Type: Report from Study
  Country: RO (occurrence: RO)
  Receive Date: 20190816
  Receipt Date: 20190828
  Transmission Date: 20191004
  Serious: Yes (Congenital Anomaly, Other)
  Sender: FDA-Public Use
  Company Number: RO-ALVOGEN-2019-ALVOGEN-100928

PATIENT
  Age: 36 Week
  Sex: Male

DRUGS (2)
  1. NEVIRAPINE. [Suspect]
     Active Substance: NEVIRAPINE
     Indication: PRODUCT USED FOR UNKNOWN INDICATION
     Route: 064
  2. LAMIVUDINE/ZIDOVUDINE [Suspect]
     Active Substance: LAMIVUDINE\ZIDOVUDINE
     Indication: PRODUCT USED FOR UNKNOWN INDICATION
     Dosage: TAB/CAPS
     Route: 064

REACTIONS (3)
  - Foetal exposure during pregnancy [Unknown]
  - Dandy-Walker syndrome [Unknown]
  - Congenital central nervous system anomaly [Unknown]
